FAERS Safety Report 7303377-2 (Version None)
Quarter: 2011Q1

REPORT INFORMATION
  Report Type: 
  Country: None (occurrence: None)
  Receive Date: 20110221
  Receipt Date: 20110207
  Transmission Date: 20110831
  Serious: Yes (Other)
  Sender: FDA-Public Use
  Company Number: US-ELI_LILLY_AND_COMPANY-US201008004925

PATIENT
  Sex: Female

DRUGS (1)
  1. FORTEO [Suspect]
     Indication: OSTEOPOROSIS
     Dosage: 20 UG, DAILY (1/D)
     Dates: start: 20100807

REACTIONS (14)
  - LOSS OF CONSCIOUSNESS [None]
  - CONTUSION [None]
  - JOINT INJURY [None]
  - EXCORIATION [None]
  - FEELING ABNORMAL [None]
  - MALAISE [None]
  - MUSCLE SPASMS [None]
  - ALOPECIA [None]
  - FALL [None]
  - MASS [None]
  - BACK PAIN [None]
  - MEDICATION ERROR [None]
  - CONSTIPATION [None]
  - DEHYDRATION [None]
